FAERS Safety Report 9657326 (Version 5)
Quarter: 2015Q2

REPORT INFORMATION
  Report Type: Spontaneous
  Country: US (occurrence: US)
  Receive Date: 20131030
  Receipt Date: 20150528
  Transmission Date: 20150821
  Serious: Yes (Hospitalization, Other)
  Sender: FDA-Public Use
  Company Number: US-GLAXOSMITHKLINE-A1047429A

PATIENT
  Sex: Female

DRUGS (5)
  1. FLOLAN [Suspect]
     Active Substance: EPOPROSTENOL SODIUM
     Dosage: 48.5 NG/KG/MIN, 60,000 NG/ML, 76 ML/DAY, 1.5 MG CO
     Route: 042
  2. LASIX [Concomitant]
     Active Substance: FUROSEMIDE
  3. WARFARIN [Concomitant]
     Active Substance: WARFARIN
  4. REVATIO [Concomitant]
     Active Substance: SILDENAFIL CITRATE
  5. FLOLAN [Suspect]
     Active Substance: EPOPROSTENOL SODIUM
     Indication: PULMONARY ARTERIAL HYPERTENSION
     Dosage: 28.5 NG/KG/MIN CONTINUOUSLY (CONCENTRATION 45,000 NG/ML; 1.5 MG VIAL STRENGTH)
     Route: 042
     Dates: start: 20101228

REACTIONS (4)
  - Oedema [Recovered/Resolved]
  - Infection [Unknown]
  - Catheter site infection [Unknown]
  - Blood sodium increased [Recovered/Resolved]
